FAERS Safety Report 21271610 (Version 2)
Quarter: 2022Q3

REPORT INFORMATION
  Report Type: Spontaneous
  Country: JP (occurrence: JP)
  Receive Date: 20220830
  Receipt Date: 20220906
  Transmission Date: 20221026
  Serious: Yes (Hospitalization)
  Sender: FDA-Public Use
  Company Number: JP-TEVA-2022-JP-2068586

PATIENT
  Age: 34 Year
  Sex: Female
  Weight: 40.8 kg

DRUGS (1)
  1. PREDNISOLONE [Suspect]
     Active Substance: PREDNISOLONE
     Indication: Gastroenteritis eosinophilic
     Route: 048

REACTIONS (1)
  - Whipple^s disease [Recovered/Resolved]
